FAERS Safety Report 9276251 (Version 1)
Quarter: 2012Q4

REPORT INFORMATION
  Report Type: Spontaneous
  Country: ES (occurrence: None)
  Receive Date: 20121109
  Receipt Date: 20121109
  Transmission Date: 20130627
  Serious: Yes (Other)
  Sender: FDA-Public Use
  Company Number: 2012S1000083

PATIENT
  Age: 88 Year
  Sex: Female

DRUGS (8)
  1. CUBICIN (DAPTOMYCIN) [Suspect]
     Indication: SPONDYLODISCITIS
     Route: 042
     Dates: start: 20110503, end: 20110510
  2. OMEPRAZOLE [Concomitant]
  3. GABAPENTIN [Concomitant]
  4. ACETYOLSALICYLIC ACID [Concomitant]
  5. TRAZODONE [Concomitant]
  6. FUROSEMIDE [Concomitant]
  7. ENOXAPARIN [Concomitant]
  8. ALLOPURINOL [Concomitant]

REACTIONS (1)
  - Convulsion [None]
